FAERS Safety Report 8208005-X (Version None)
Quarter: 2012Q1

REPORT INFORMATION
  Report Type: 
  Country: None (occurrence: None)
  Receive Date: 20120314
  Receipt Date: 20120305
  Transmission Date: 20120608
  Serious: Yes (Hospitalization)
  Sender: FDA-Public Use
  Company Number: FR-VERTEX PHARMACEUTICALS INC.-000000000000000328

PATIENT
  Sex: Male
  Weight: 65 kg

DRUGS (7)
  1. TIORFAN [Concomitant]
     Dates: start: 20111212, end: 20120115
  2. INCIVO [Suspect]
     Indication: HEPATITIS C
     Dosage: DOSAGE FORM: TABLET
     Route: 048
  3. INCIVO [Suspect]
     Dosage: DOSAGE FORM: TABLET
     Route: 048
     Dates: start: 20111202
  4. LEVOTHYROXINE SODIUM [Concomitant]
     Indication: BLOOD THYROID STIMULATING HORMONE INCREASED
     Dates: start: 20120113
  5. COPEGUS [Concomitant]
     Indication: HEPATITIS C
     Route: 048
     Dates: start: 20111202
  6. PEGASYS [Concomitant]
     Indication: HEPATITIS C
     Route: 058
     Dates: start: 20111202
  7. VOLTAREN [Concomitant]
     Dates: start: 20111202, end: 20120115

REACTIONS (6)
  - HYPERURICAEMIA [None]
  - TOXIC SKIN ERUPTION [None]
  - PANCYTOPENIA [None]
  - INAPPROPRIATE SCHEDULE OF DRUG ADMINISTRATION [None]
  - PRURITUS [None]
  - BLOOD THYROID STIMULATING HORMONE INCREASED [None]
